FAERS Safety Report 19157092 (Version 1)
Quarter: 2021Q2

REPORT INFORMATION
  Report Type: Report from Study
  Country: KR (occurrence: KR)
  Receive Date: 20210420
  Receipt Date: 20210420
  Transmission Date: 20210717
  Serious: Yes (Other)
  Sender: FDA-Public Use
  Company Number: KR-JNJFOC-20210432038

PATIENT

DRUGS (6)
  1. 5?ASA [Concomitant]
     Active Substance: MESALAMINE
  2. SULFASALAZINE. [Concomitant]
     Active Substance: SULFASALAZINE
  3. AZATHIOPRINE. [Concomitant]
     Active Substance: AZATHIOPRINE
  4. INFLIXIMAB, RECOMBINANT [Suspect]
     Active Substance: INFLIXIMAB
     Indication: INFLAMMATORY BOWEL DISEASE
     Route: 042
  5. 6?MP [Concomitant]
     Active Substance: MERCAPTOPURINE
  6. METHOTREXATE. [Concomitant]
     Active Substance: METHOTREXATE

REACTIONS (1)
  - Lupus-like syndrome [Unknown]
